FAERS Safety Report 13725290 (Version 1)
Quarter: 2017Q3

REPORT INFORMATION
  Report Type: Spontaneous
  Country: FR (occurrence: FR)
  Receive Date: 20170707
  Receipt Date: 20170707
  Transmission Date: 20171127
  Serious: Yes (Other)
  Sender: FDA-Public Use
  Company Number: FR-BAYER-2017-128254

PATIENT
  Age: 32 Year
  Sex: Female
  Weight: 60 kg

DRUGS (1)
  1. MIRENA [Suspect]
     Active Substance: LEVONORGESTREL
     Dosage: 20 MCG/24HR, CONT
     Route: 015
     Dates: start: 20130803, end: 20170519

REACTIONS (9)
  - Migraine [Unknown]
  - Depression [Unknown]
  - Abdominal distension [Recovering/Resolving]
  - Vomiting [Unknown]
  - Loss of libido [Recovering/Resolving]
  - Anxiety [Unknown]
  - Irritability [Unknown]
  - Vertigo [Unknown]
  - Stress [Recovering/Resolving]

NARRATIVE: CASE EVENT DATE: 201311
